FAERS Safety Report 10726207 (Version 2)
Quarter: 2015Q1

REPORT INFORMATION
  Report Type: Spontaneous
  Country: US (occurrence: US)
  Receive Date: 20150121
  Receipt Date: 20150331
  Transmission Date: 20150721
  Serious: Yes (Disabling)
  Sender: FDA-Public Use
  Company Number: US-009507513-1501USA003704

PATIENT
  Sex: Female
  Weight: 60.32 kg

DRUGS (1)
  1. FOSAMAX [Suspect]
     Active Substance: ALENDRONATE SODIUM
     Indication: OSTEOPOROSIS
     Dosage: UNK, ONCE A WEEK
     Route: 048
     Dates: start: 2014, end: 2014

REACTIONS (4)
  - Sensory disturbance [Unknown]
  - Pain in extremity [Not Recovered/Not Resolved]
  - Bone pain [Recovering/Resolving]
  - Arthralgia [Recovering/Resolving]

NARRATIVE: CASE EVENT DATE: 2014
